FAERS Safety Report 8172899-7 (Version None)
Quarter: 2012Q1

REPORT INFORMATION
  Report Type: 
  Country: None (occurrence: None)
  Receive Date: 20120223
  Receipt Date: 20120213
  Transmission Date: 20120608
  Serious: Yes (Hospitalization)
  Sender: FDA-Public Use
  Company Number: UTC-014794

PATIENT
  Age: 47 Year
  Sex: Female
  Weight: 91.8 kg

DRUGS (4)
  1. REMODULIN [Suspect]
     Indication: PULMONARY ARTERIAL HYPERTENSION
     Dosage: 125.28 UG/KG (0.087 UG/KG,1 IN 1 MIN),INTRAVENOUS
     Route: 042
     Dates: start: 20091110
  2. REVATIO (SILDENAFIL CITRATE) (20 MILLIGRAM, TABLET) [Concomitant]
  3. REMODULIN [Suspect]
     Dosage: 125.28 UG/KG (0.087 UG/KG,1 IN 1 MIN),SUBCUTANEOUS
     Route: 058
     Dates: start: 20091209
  4. COUMADIN [Concomitant]

REACTIONS (2)
  - GALLBLADDER DISORDER [None]
  - PULMONARY HYPERTENSION [None]
